FAERS Safety Report 25891798 (Version 1)
Quarter: 2025Q4

REPORT INFORMATION
  Report Type: Spontaneous
  Country: DZ (occurrence: DZ)
  Receive Date: 20251007
  Receipt Date: 20251007
  Transmission Date: 20260117
  Serious: Yes (Death, Other)
  Sender: BIOMARIN
  Company Number: DZ-SA-2025SA224589

PATIENT
  Age: 18 Year
  Sex: Female

DRUGS (1)
  1. ALDURAZYME [Suspect]
     Active Substance: LARONIDASE
     Indication: Mucopolysaccharidosis I
     Dosage: UNK

REACTIONS (6)
  - Death [Fatal]
  - Myelodysplastic syndrome with single lineage dysplasia [Unknown]
  - Pulmonary arterial hypertension [Unknown]
  - Drug intolerance [Unknown]
  - Dyspnoea [Unknown]
  - Urticaria [Unknown]
